FAERS Safety Report 24309670 (Version 1)
Quarter: 2024Q3

REPORT INFORMATION
  Report Type: Spontaneous
  Country: US (occurrence: US)
  Receive Date: 20240912
  Receipt Date: 20240912
  Transmission Date: 20241016
  Serious: Yes (Hospitalization, Other)
  Sender: RANBAXY
  Company Number: US-SUN PHARMACEUTICAL INDUSTRIES LTD-2024R1-467116

PATIENT
  Age: 67 Year
  Sex: Male

DRUGS (2)
  1. ROSUVASTATIN [Suspect]
     Active Substance: ROSUVASTATIN\ROSUVASTATIN CALCIUM
     Indication: Hypertension
     Dosage: 40 MILLIGRAM, DAILY
     Route: 048
  2. LISINOPRIL [Suspect]
     Active Substance: LISINOPRIL
     Indication: Hypertension
     Dosage: 2.5 MILLIGRAM
     Route: 048

REACTIONS (4)
  - Nephropathy [Unknown]
  - Acute kidney injury [Unknown]
  - Severe acute respiratory syndrome [Unknown]
  - Rhabdomyolysis [Unknown]
